FAERS Safety Report 19808812 (Version 1)
Quarter: 2021Q3

REPORT INFORMATION
  Report Type: Spontaneous
  Country: US (occurrence: US)
  Receive Date: 20210909
  Receipt Date: 20210909
  Transmission Date: 20211014
  Serious: Yes (Life-Threatening)
  Sender: FDA-Public Use
  Company Number: None

PATIENT
  Age: 41 Year
  Sex: Female
  Weight: 81 kg

DRUGS (2)
  1. BUPROPION HCL 300 MG [Suspect]
     Active Substance: BUPROPION HYDROCHLORIDE
     Route: 048
  2. ASPIRIN. [Concomitant]
     Active Substance: ASPIRIN

REACTIONS (4)
  - Thrombosis [None]
  - Pain [None]
  - Bursitis [None]
  - Migraine [None]

NARRATIVE: CASE EVENT DATE: 20201001
